FAERS Safety Report 12659608 (Version 1)
Quarter: 2016Q3

REPORT INFORMATION
  Report Type: Spontaneous
  Country: US (occurrence: US)
  Receive Date: 20160817
  Receipt Date: 20160817
  Transmission Date: 20161109
  Serious: Yes (Death, Other)
  Sender: FDA-Public Use
  Company Number: US-BRISTOL-MYERS SQUIBB COMPANY-BMS-2016-065898

PATIENT
  Sex: Male

DRUGS (3)
  1. YERVOY [Suspect]
     Active Substance: IPILIMUMAB
     Dosage: 842 MG, EVERY 3 WEEKS
     Route: 042
     Dates: start: 20160503
  2. YERVOY [Suspect]
     Active Substance: IPILIMUMAB
     Indication: MALIGNANT MELANOMA
     Dosage: 842 MG, EVERY 3 WEEKS
     Route: 042
     Dates: start: 20160321
  3. YERVOY [Suspect]
     Active Substance: IPILIMUMAB
     Dosage: 842 MG, EVERY 3 WEEKS
     Route: 042
     Dates: start: 20160412

REACTIONS (7)
  - Urinary tract infection [Unknown]
  - Hypothyroidism [Unknown]
  - Renal failure [Unknown]
  - Adrenal insufficiency [Unknown]
  - Pneumonia [Unknown]
  - Gastrointestinal disorder [Unknown]
  - Death [Fatal]
